FAERS Safety Report 6032180-9 (Version None)
Quarter: 2008Q4

REPORT INFORMATION
  Report Type: 
  Country: None (occurrence: None)
  Receive Date: 20081224
  Receipt Date: 20081216
  Transmission Date: 20090506
  Serious: Yes (Other)
  Sender: FDA-Public Use
  Company Number: 200814338

PATIENT
  Age: 37 Year
  Sex: Female
  Weight: 80 kg

DRUGS (5)
  1. RHOPHYLAC 300 (IMMUNOGLOBULIN HUMAN ANTI-RH) (CSL BEHRING) [Suspect]
     Indication: PROPHYLAXIS AGAINST RH ISOIMMUNISATION
     Dosage: 300 UG DAILY IM
     Route: 030
     Dates: start: 20070501, end: 20070501
  2. RHOPHYLAC 300 (IMMUNOGLOBULIN HUMAN ANTI-RH) (CSL BEHRING) [Suspect]
     Indication: VAGINAL HAEMORRHAGE
     Dosage: 300 UG DAILY IM
     Route: 030
     Dates: start: 20070501, end: 20070501
  3. RHOPHYLAC 300 (IMMUNOGLOBULIN HUMAN ANTI-RH) (CSL BEHRING) [Suspect]
     Indication: PROPHYLAXIS AGAINST RH ISOIMMUNISATION
     Dosage: 300 UG DAILY IM
     Route: 030
     Dates: start: 20081101, end: 20081101
  4. RHOPHYLAC 300 (IMMUNOGLOBULIN HUMAN ANTI-RH) (CSL BEHRING) [Suspect]
     Indication: VAGINAL HAEMORRHAGE
     Dosage: 300 UG DAILY IM
     Route: 030
     Dates: start: 20081101, end: 20081101
  5. RHOPHYLAC 300 (IMMUNOGLOBULIN HUMAN ANTI-RH) (CSL BEHRING) [Suspect]

REACTIONS (2)
  - ABORTION MISSED [None]
  - DRUG EXPOSURE DURING PREGNANCY [None]
